FAERS Safety Report 16964251 (Version 1)
Quarter: 2019Q4

REPORT INFORMATION
  Report Type: Spontaneous
  Country: US (occurrence: US)
  Receive Date: 20191025
  Receipt Date: 20191025
  Transmission Date: 20200122
  Serious: Yes (Other)
  Sender: FDA-Public Use
  Company Number: None

PATIENT
  Sex: Female

DRUGS (1)
  1. TC99M MEDRONATE [Suspect]
     Active Substance: TECHNETIUM TC-99M MEDRONATE
     Indication: IMAGING PROCEDURE
     Dosage: ?          OTHER FREQUENCY:ONCE;?
     Route: 040

REACTIONS (1)
  - Anaphylactic reaction [None]

NARRATIVE: CASE EVENT DATE: 20191023
